FAERS Safety Report 10976409 (Version 1)
Quarter: 2015Q1

REPORT INFORMATION
  Report Type: Spontaneous
  Country: None (occurrence: None)
  Receive Date: 20150226
  Receipt Date: 20150226
  Transmission Date: 20150721
  Serious: No
  Sender: FDA-Public Use
  Company Number: TPA2010A03892

PATIENT

DRUGS (3)
  1. ADENURIC (FEBUXOSTAT) [Suspect]
     Active Substance: FEBUXOSTAT
     Indication: HYPERURICAEMIA
     Route: 048
     Dates: start: 201003, end: 201006
  2. COLCHIMAX (COLCHICINE, TIEMONIUM METHYLSULPHATE, PAPAVER SOMNIFERUM POWDER) [Concomitant]
  3. ARAVA [Suspect]
     Active Substance: LEFLUNOMIDE
     Indication: PRODUCT USED FOR UNKNOWN INDICATION
     Dates: start: 201003, end: 201006

REACTIONS (2)
  - Transaminases increased [None]
  - Arthralgia [None]

NARRATIVE: CASE EVENT DATE: 2010
